FAERS Safety Report 16787038 (Version 1)
Quarter: 2019Q3

REPORT INFORMATION
  Report Type: Spontaneous
  Country: US (occurrence: US)
  Receive Date: 20190909
  Receipt Date: 20190909
  Transmission Date: 20191005
  Serious: No
  Sender: FDA-Public Use
  Company Number: US-SA-2019SA244963

PATIENT
  Sex: Male

DRUGS (2)
  1. DUPIXENT [Suspect]
     Active Substance: DUPILUMAB
     Indication: PSORIASIS
     Dosage: 300 MG, QOW
     Route: 058
     Dates: start: 20181109
  2. OTEZLA [Concomitant]
     Active Substance: APREMILAST

REACTIONS (3)
  - Product use in unapproved indication [Unknown]
  - Erythema [Not Recovered/Not Resolved]
  - Product dose omission [Not Recovered/Not Resolved]
